FAERS Safety Report 7267123-3 (Version None)
Quarter: 2011Q1

REPORT INFORMATION
  Report Type: 
  Country: None (occurrence: None)
  Receive Date: 20110201
  Receipt Date: 20110127
  Transmission Date: 20110831
  Serious: No
  Sender: FDA-Public Use
  Company Number: US-JNJFOC-20110108050

PATIENT
  Sex: Female
  Weight: 56.7 kg

DRUGS (6)
  1. AMBIEN [Concomitant]
     Indication: SLEEP DISORDER
     Dosage: AT NIGHT
     Route: 048
  2. NEURONTIN [Concomitant]
     Indication: NEUROPATHY PERIPHERAL
     Route: 048
  3. FENTANYL-100 [Suspect]
     Indication: PAIN
     Route: 062
  4. ZANAFLEX [Concomitant]
     Indication: PAIN
     Route: 048
  5. FENTANYL-100 [Suspect]
     Route: 062
  6. NORCO [Concomitant]
     Indication: PAIN
     Dosage: 10/325
     Route: 048

REACTIONS (2)
  - DRUG DOSE OMISSION [None]
  - APPLICATION SITE RASH [None]
